FAERS Safety Report 17786429 (Version 2)
Quarter: 2020Q4

REPORT INFORMATION
  Report Type: Report from Study
  Country: US (occurrence: US)
  Receive Date: 20200514
  Receipt Date: 20201125
  Transmission Date: 20210113
  Serious: Yes (Death, Life-Threatening)
  Sender: FDA-Public Use
  Company Number: US-SA-2020SA115022

PATIENT

DRUGS (10)
  1. METHYLPREDNISOLONE SODIUM SUCCINATE. [Concomitant]
     Active Substance: METHYLPREDNISOLONE SODIUM SUCCINATE
     Indication: ACUTE RESPIRATORY FAILURE
     Dosage: 68.125 MG, QD
     Route: 042
     Dates: start: 20200423, end: 20200423
  2. ACETAMINOPHEN. [Concomitant]
     Active Substance: ACETAMINOPHEN
     Dosage: 650 MG, AS NECESSARY
     Route: 050
     Dates: start: 20200423, end: 20200429
  3. SARILUMAB [Suspect]
     Active Substance: SARILUMAB
     Indication: COVID-19
     Dosage: 400 MG, 1X
     Route: 042
     Dates: start: 20200423, end: 20200423
  4. SARILUMAB [Suspect]
     Active Substance: SARILUMAB
     Dosage: 400 MG, 1X
     Route: 042
     Dates: start: 20200424, end: 20200424
  5. HYDROXYCHLOROQUINE [Concomitant]
     Active Substance: HYDROXYCHLOROQUINE
     Dosage: 200 MG BID
     Route: 050
     Dates: start: 20200424, end: 20200427
  6. METHYLPREDNISOLONE SODIUM SUCCINATE. [Concomitant]
     Active Substance: METHYLPREDNISOLONE SODIUM SUCCINATE
     Dosage: 68 MG, CONTINUOUS INFUSION
     Route: 042
     Dates: start: 20200423, end: 20200428
  7. CEFTRIAXONE. [Concomitant]
     Active Substance: CEFTRIAXONE
     Indication: COVID-19
     Dosage: 2 G, QD
     Route: 042
     Dates: start: 20200423, end: 20200424
  8. DOXYCYCLINE. [Concomitant]
     Active Substance: DOXYCYCLINE
     Indication: COVID-19
     Dosage: 100 MG, BID
     Route: 050
     Dates: start: 20200423, end: 20200424
  9. ACETAMINOPHEN. [Concomitant]
     Active Substance: ACETAMINOPHEN
     Indication: PYREXIA
  10. HYDROXYCHLOROQUINE [Concomitant]
     Active Substance: HYDROXYCHLOROQUINE
     Indication: COVID-19
     Dosage: 400 MG, BID
     Route: 050
     Dates: start: 20200423, end: 20200423

REACTIONS (2)
  - Sepsis [Not Recovered/Not Resolved]
  - Acute respiratory failure [Fatal]

NARRATIVE: CASE EVENT DATE: 20200429
